FAERS Safety Report 23277242 (Version 4)
Quarter: 2025Q2

REPORT INFORMATION
  Report Type: Spontaneous
  Country: CH (occurrence: CH)
  Receive Date: 20231208
  Receipt Date: 20250602
  Transmission Date: 20250716
  Serious: Yes (Hospitalization, Other)
  Sender: BIOGEN
  Company Number: CH-BIOGEN-2023BI01238864

PATIENT
  Age: 41 Year
  Sex: Female
  Weight: 81 kg

DRUGS (1)
  1. SPINRAZA [Suspect]
     Active Substance: NUSINERSEN
     Indication: Spinal muscular atrophy
     Dosage: CYCLICAL; THE 12TH DOSE TOOK PLACE ON 09 AUG 2023
     Route: 050
     Dates: start: 20200925

REACTIONS (3)
  - Encephalitis [Recovered/Resolved]
  - Autoimmune cerebellar ataxia [Unknown]
  - Otitis media [Unknown]

NARRATIVE: CASE EVENT DATE: 20231118
